FAERS Safety Report 16767006 (Version 4)
Quarter: 2019Q4

REPORT INFORMATION
  Report Type: Spontaneous
  Country: US (occurrence: US)
  Receive Date: 20190903
  Receipt Date: 20191127
  Transmission Date: 20200122
  Serious: No
  Sender: FDA-Public Use
  Company Number: US-PFIZER INC-2019373008

PATIENT
  Age: 71 Year
  Sex: Female
  Weight: 81 kg

DRUGS (1)
  1. IBRANCE [Suspect]
     Active Substance: PALBOCICLIB
     Indication: BREAST CANCER METASTATIC
     Dosage: 125 MG, 1X/DAY
     Dates: start: 201602

REACTIONS (4)
  - Influenza [Unknown]
  - Vomiting [Not Recovered/Not Resolved]
  - Sinus disorder [Recovering/Resolving]
  - Seasonal allergy [Unknown]
